APPROVED DRUG PRODUCT: DDAVP
Active Ingredient: DESMOPRESSIN ACETATE
Strength: 0.01MG/SPRAY **Federal Register determination that product was not discontinued or withdrawn for safety or effectiveness reasons**
Dosage Form/Route: SPRAY, METERED;NASAL
Application: N017922 | Product #002
Applicant: FERRING PHARMACEUTICALS INC
Approved: Feb 6, 1989 | RLD: Yes | RS: No | Type: DISCN